FAERS Safety Report 9349072 (Version 1)
Quarter: 2013Q2

REPORT INFORMATION
  Report Type: Spontaneous
  Country: FR (occurrence: FR)
  Receive Date: 20130614
  Receipt Date: 20130614
  Transmission Date: 20140414
  Serious: Yes (Death)
  Sender: FDA-Public Use
  Company Number: FR-TEVA-412217ISR

PATIENT
  Age: 77 Year
  Sex: Female

DRUGS (16)
  1. FUROSEMIDE TEVA 40 MG [Suspect]
     Indication: OEDEMA
     Dates: start: 201210
  2. FUROSEMIDE TEVA 40 MG [Suspect]
     Dosage: 80 MILLIGRAM DAILY;
     Dates: start: 201301
  3. FUROSEMIDE TEVA 40 MG [Suspect]
     Dosage: 120 MILLIGRAM DAILY;
     Dates: start: 201304
  4. SOLUMEDROL [Concomitant]
  5. ROCEPHINE [Concomitant]
     Indication: LUNG INFECTION
  6. PAROXETINE [Concomitant]
  7. PAROXETINE [Concomitant]
  8. PAROXETINE [Concomitant]
  9. PAROXETINE [Concomitant]
  10. BROMAZEPAM [Concomitant]
  11. TARDYFERON [Concomitant]
  12. ELISOR [Concomitant]
  13. ESOMEPRAZOLE [Concomitant]
  14. LEVOTHYROX 175 [Concomitant]
  15. GLICLAZIDE [Concomitant]
  16. HEMIGOXINE [Concomitant]

REACTIONS (3)
  - Pulmonary oedema [Fatal]
  - Somnolence [Unknown]
  - Oedema [Unknown]
